FAERS Safety Report 9296094 (Version 1)
Quarter: 2013Q2

REPORT INFORMATION
  Report Type: Spontaneous
  Country: GB (occurrence: None)
  Receive Date: 20130514
  Receipt Date: 20130514
  Transmission Date: 20140414
  Serious: Yes (Hospitalization)
  Sender: FDA-Public Use
  Company Number: AUR-APL-2013-03806

PATIENT
  Age: 59 Year
  Sex: Male

DRUGS (4)
  1. NAPROXEN (NAPROXEN) [Suspect]
     Indication: BACK PAIN
     Route: 048
     Dates: start: 20130403, end: 20130418
  2. NAPROXEN (NAPROXEN) [Suspect]
     Indication: INTERVERTEBRAL DISC PROTRUSION
     Route: 048
     Dates: start: 20130403, end: 20130418
  3. ATORVASTATIN [Concomitant]
  4. LANSPORAZOLE [Concomitant]

REACTIONS (5)
  - Influenza like illness [None]
  - Arthralgia [None]
  - Abdominal pain [None]
  - Viral infection [None]
  - Hepatitis [None]
